FAERS Safety Report 12898053 (Version 1)
Quarter: 2016Q4

REPORT INFORMATION
  Report Type: Spontaneous
  Country: US (occurrence: US)
  Receive Date: 20161031
  Receipt Date: 20161031
  Transmission Date: 20170207
  Serious: No
  Sender: FDA-Public Use
  Company Number: US-AKRIMAX-TIR-2016-1007

PATIENT
  Age: 36 Year
  Sex: Female
  Weight: 65.38 kg

DRUGS (4)
  1. NATURE-THROID [Concomitant]
     Active Substance: THYROID, PORCINE
     Indication: AUTOIMMUNE THYROIDITIS
     Dosage: ONCE DAILY
     Route: 048
     Dates: start: 201412
  2. TIROSINT [Suspect]
     Active Substance: LEVOTHYROXINE SODIUM
     Dosage: ONE HALF CAPSULE
     Route: 048
     Dates: start: 20160831, end: 20160831
  3. TIROSINT [Suspect]
     Active Substance: LEVOTHYROXINE SODIUM
     Indication: AUTOIMMUNE THYROIDITIS
     Dosage: ONCE DAILY
     Route: 048
     Dates: start: 201411, end: 201412
  4. TIROSINT [Suspect]
     Active Substance: LEVOTHYROXINE SODIUM
     Indication: AUTOIMMUNE THYROIDITIS
     Dosage: ONCE DAILY
     Route: 048
     Dates: start: 201409, end: 201411

REACTIONS (5)
  - Laboratory test abnormal [Unknown]
  - Incorrect drug dosage form administered [Unknown]
  - Anxiety [Unknown]
  - Migraine [Unknown]
  - Heart rate increased [Unknown]

NARRATIVE: CASE EVENT DATE: 2014
